FAERS Safety Report 9874996 (Version 2)
Quarter: 2014Q1

REPORT INFORMATION
  Report Type: Report from Study
  Country: CA (occurrence: CA)
  Receive Date: 20140206
  Receipt Date: 20140213
  Transmission Date: 20141002
  Serious: Yes (Death)
  Sender: FDA-Public Use
  Company Number: PHHY2014CA014060

PATIENT
  Sex: Female
  Weight: 45 kg

DRUGS (3)
  1. ACLASTA/ZOLEDRONATE [Suspect]
     Dosage: UNK
     Route: 042
  2. VITAMIN D [Concomitant]
     Dosage: UNK
     Dates: start: 20090622
  3. CALCIUM [Concomitant]
     Dosage: UNK
     Dates: start: 20090622

REACTIONS (1)
  - Death [Fatal]
